FAERS Safety Report 5026618-3 (Version None)
Quarter: 2006Q2

REPORT INFORMATION
  Report Type: 
  Country: None (occurrence: None)
  Receive Date: 20060613
  Receipt Date: 20060613
  Transmission Date: 20061013
  Serious: Yes (Hospitalization)
  Sender: FDA-Public Use
  Company Number: None

PATIENT
  Sex: Female

DRUGS (8)
  1. CLOZAPINE [Suspect]
     Indication: BIPOLAR DISORDER
     Dosage: 350 MG QHS PO
     Route: 048
     Dates: end: 20060510
  2. CLOZAPINE [Suspect]
     Indication: SCHIZOAFFECTIVE DISORDER
     Dosage: 350 MG QHS PO
     Route: 048
     Dates: end: 20060510
  3. ALBUTEROL [Concomitant]
  4. BECLOMETHASONE INHALER [Concomitant]
  5. CLONIDINE HCL [Concomitant]
  6. DIPHENHYDRAMINE HCL [Concomitant]
  7. DITROPAN [Concomitant]
  8. DOCUSATE [Concomitant]

REACTIONS (8)
  - ATELECTASIS [None]
  - CARDIAC DISORDER [None]
  - CARDIOMEGALY [None]
  - EFFUSION [None]
  - MALAISE [None]
  - PERICARDIAL EFFUSION [None]
  - PLEURAL EFFUSION [None]
  - VENTRICULAR DYSFUNCTION [None]
